FAERS Safety Report 25230589 (Version 3)
Quarter: 2025Q2

REPORT INFORMATION
  Report Type: Report from Study
  Country: MX (occurrence: MX)
  Receive Date: 20250423
  Receipt Date: 20250610
  Transmission Date: 20250716
  Serious: Yes (Other)
  Sender: NOVARTIS
  Company Number: MX-002147023-NVSC2025MX056793

PATIENT
  Age: 99 Year
  Sex: Female
  Weight: 76 kg

DRUGS (7)
  1. HYDROCHLOROTHIAZIDE\VALSARTAN [Suspect]
     Active Substance: HYDROCHLOROTHIAZIDE\VALSARTAN
     Indication: Blood pressure increased
     Dosage: 1 DOSAGE FORM OF 320/25MG, QD
     Route: 048
     Dates: start: 1985, end: 20250330
  2. HYDROCHLOROTHIAZIDE\VALSARTAN [Suspect]
     Active Substance: HYDROCHLOROTHIAZIDE\VALSARTAN
     Indication: Hypertension
     Dosage: 1 DOSAGE FORM OF 320/12.5 MG, QD
     Route: 048
     Dates: start: 2005, end: 202502
  3. HYDROCHLOROTHIAZIDE\VALSARTAN [Suspect]
     Active Substance: HYDROCHLOROTHIAZIDE\VALSARTAN
     Dosage: 1 DOSAGE FORM OF 320/25MG, QD (2X14 VT MX)
     Route: 048
     Dates: start: 20250329, end: 20250330
  4. HYDROCHLOROTHIAZIDE\VALSARTAN [Suspect]
     Active Substance: HYDROCHLOROTHIAZIDE\VALSARTAN
     Dosage: 0.5 DOSAGE FORM OF 320/25 MG, QD
     Route: 048
  5. METFORMIN [Concomitant]
     Active Substance: METFORMIN HYDROCHLORIDE
     Indication: Diabetes mellitus
     Dosage: 1 DOSAGE FORM OF 850 MG (TABLET) QD (SEVERAL YEARS AGO, EXACT DATE UNKNOWN)
     Route: 048
  6. CELEBREX [Concomitant]
     Active Substance: CELECOXIB
     Indication: Neck pain
     Dosage: 1 DOSAGE FORM IN CASE OF NEED (TABLET), QD (SEVERAL YEARS AGO, EXACT DATE UNKNOWN)
     Route: 048
     Dates: end: 202503
  7. TRAMADOL [Concomitant]
     Active Substance: TRAMADOL
     Indication: Neck pain
     Route: 048
     Dates: start: 202503

REACTIONS (7)
  - Syncope [Recovered/Resolved]
  - Feeling abnormal [Recovering/Resolving]
  - Dizziness [Unknown]
  - Malaise [Recovered/Resolved]
  - Movement disorder [Recovering/Resolving]
  - Fall [Recovered/Resolved]
  - Wrong technique in product usage process [Unknown]

NARRATIVE: CASE EVENT DATE: 20250329
